FAERS Safety Report 21184478 (Version 1)
Quarter: 2022Q3

REPORT INFORMATION
  Report Type: Spontaneous
  Country: US (occurrence: None)
  Receive Date: 20220807
  Receipt Date: 20220807
  Transmission Date: 20221026
  Serious: Yes (Life-Threatening, Hospitalization, Disabling)
  Sender: FDA-Public Use
  Company Number: None

PATIENT
  Age: 46 Year
  Sex: Male
  Weight: 77.11 kg

DRUGS (4)
  1. SUFENTANIL [Suspect]
     Active Substance: SUFENTANIL
     Indication: Pain
     Dosage: OTHER ROUTE : ;?
     Route: 050
     Dates: start: 20180807
  2. CLONIDINE [Suspect]
     Active Substance: CLONIDINE
  3. BUPIVACAINE [Suspect]
     Active Substance: BUPIVACAINE
  4. DEVICE [Suspect]
     Active Substance: DEVICE
     Dates: start: 20200810

REACTIONS (1)
  - Drug ineffective [None]

NARRATIVE: CASE EVENT DATE: 20220801
